FAERS Safety Report 5456912-3 (Version None)
Quarter: 2007Q3

REPORT INFORMATION
  Report Type: 
  Country: None (occurrence: None)
  Receive Date: 20070918
  Receipt Date: 20070228
  Transmission Date: 20080115
  Serious: Yes (Hospitalization, Other)
  Sender: FDA-Public Use
  Company Number: US-ASTRAZENECA-2006UW27488

PATIENT
  Age: 10766 Day
  Sex: Male
  Weight: 90 kg

DRUGS (2)
  1. SEROQUEL [Suspect]
     Indication: BIPOLAR DISORDER
     Route: 048
     Dates: start: 20060101, end: 20061001
  2. GEODON [Concomitant]

REACTIONS (1)
  - TARDIVE DYSKINESIA [None]
